FAERS Safety Report 10365099 (Version 1)
Quarter: 2014Q3

REPORT INFORMATION
  Report Type: Spontaneous
  Country: US (occurrence: None)
  Receive Date: 20140804
  Receipt Date: 20140804
  Transmission Date: 20150326
  Serious: Yes (Hospitalization)
  Sender: FDA-Public Use
  Company Number: US-001122

PATIENT
  Sex: Female

DRUGS (2)
  1. SOLUTIONS FOR PARENTERAL NUTRITION [Concomitant]
     Active Substance: AMINO ACIDS\DEXTROSE\ELECTROLYTES NOS
  2. GATTEX [Suspect]
     Active Substance: TEDUGLUTIDE\WATER
     Indication: SHORT-BOWEL SYNDROME
     Dosage: QD, STREN/VOLUM: 0.41 ML/FREQU: ONCE A DAY SUBCUTANEOUS
     Route: 058
     Dates: start: 201403

REACTIONS (4)
  - Wrong technique in drug usage process [None]
  - Device related infection [None]
  - Sepsis [None]
  - Upper limb fracture [None]
